FAERS Safety Report 6431715-1 (Version None)
Quarter: 2009Q4

REPORT INFORMATION
  Report Type: 
  Country: None (occurrence: None)
  Receive Date: 20091103
  Receipt Date: 20091019
  Transmission Date: 20100525
  Serious: Yes (Hospitalization)
  Sender: FDA-Public Use
  Company Number: 02100-JPN-07-0213

PATIENT
  Age: 77 Year
  Sex: Male
  Weight: 71.6 kg

DRUGS (9)
  1. PLETAL [Suspect]
     Indication: CEREBRAL INFARCTION
     Dosage: 81 MG, QD ORAL
     Route: 048
     Dates: start: 20050622, end: 20070415
  2. HIRUDOID (HEPARINOID) [Concomitant]
  3. NOVOLIN N [Concomitant]
  4. LISINOPRIL [Concomitant]
  5. LAXOBERON (SODIUM PICOSULFATE) [Concomitant]
  6. SOLDOL E (SENNOSIDE A+B) [Concomitant]
  7. GASMOTIN (MOSAPRIDE CITRATE) [Concomitant]
  8. BIOFERMIN R (STREPTOCOCCUS FAECALIS) [Concomitant]
  9. PARIET (SODIUM RABEPRAZOLE) [Concomitant]

REACTIONS (6)
  - BLOOD GLUCOSE INCREASED [None]
  - HEPATIC NEOPLASM MALIGNANT [None]
  - HYPOGLYCAEMIA [None]
  - ILEUS PARALYTIC [None]
  - MALIGNANT ASCITES [None]
  - METASTASES TO LYMPH NODES [None]
